FAERS Safety Report 20608724 (Version 2)
Quarter: 2022Q1

REPORT INFORMATION
  Report Type: Spontaneous
  Country: US (occurrence: US)
  Receive Date: 20220317
  Receipt Date: 20220328
  Transmission Date: 20220423
  Serious: Yes (Hospitalization)
  Sender: FDA-Public Use
  Company Number: US-PFIZER INC-202200411963

PATIENT
  Age: 58 Year
  Sex: Female
  Weight: 93 kg

DRUGS (2)
  1. IBRANCE [Suspect]
     Active Substance: PALBOCICLIB
     Indication: Breast cancer
     Dosage: 125 MG, CYCLIC (1 TABLET BY MOUTH DAILY FOR 21 DAYS AND OFF 7 DAYS)
     Route: 048
     Dates: start: 20220217, end: 20220309
  2. IBRANCE [Suspect]
     Active Substance: PALBOCICLIB
     Dosage: 125 MG, CYCLIC (1 TABLET BY MOUTH DAILY FOR 21 DAYS AND OFF 7 DAYS)
     Route: 048

REACTIONS (1)
  - Infection [Unknown]

NARRATIVE: CASE EVENT DATE: 20220101
